FAERS Safety Report 4987465-1 (Version None)
Quarter: 2006Q2

REPORT INFORMATION
  Report Type: 
  Country: None (occurrence: None)
  Receive Date: 20060501
  Receipt Date: 20060424
  Transmission Date: 20061013
  Serious: Yes (Hospitalization)
  Sender: FDA-Public Use
  Company Number: US-MERCK-0604USA03720

PATIENT
  Age: 63 Year
  Sex: Female
  Weight: 77 kg

DRUGS (11)
  1. VIOXX [Suspect]
     Route: 048
     Dates: start: 20000201, end: 20020501
  2. VERAPAMIL [Concomitant]
     Route: 048
  3. FUROSEMIDE [Concomitant]
     Route: 048
  4. CLARITIN [Concomitant]
     Route: 048
  5. FOSAMAX [Concomitant]
     Route: 048
  6. PROPULSID [Concomitant]
     Route: 048
  7. GLUCOTROL [Concomitant]
     Route: 048
  8. PEPCID [Concomitant]
     Route: 048
  9. GLUCOPHAGE [Concomitant]
     Route: 048
  10. ATENOLOL [Concomitant]
     Route: 048
  11. EVISTA [Concomitant]
     Route: 048

REACTIONS (1)
  - CEREBROVASCULAR ACCIDENT [None]
